FAERS Safety Report 25414841 (Version 1)
Quarter: 2025Q2

REPORT INFORMATION
  Report Type: Spontaneous
  Country: US (occurrence: US)
  Receive Date: 20250609
  Receipt Date: 20250609
  Transmission Date: 20250716
  Serious: Yes (Other)
  Sender: ASTELLAS
  Company Number: US-ASTELLAS-2025-AER-030051

PATIENT
  Age: 60 Year
  Sex: Male

DRUGS (5)
  1. TACROLIMUS [Suspect]
     Active Substance: TACROLIMUS
     Indication: Lung transplant
     Route: 065
  2. BASILIXIMAB [Suspect]
     Active Substance: BASILIXIMAB
     Indication: Lung transplant
     Route: 065
  3. METHYLPREDNISOLONE [Suspect]
     Active Substance: METHYLPREDNISOLONE
     Indication: Lung transplant
     Route: 065
  4. MYCOPHENOLIC ACID [Suspect]
     Active Substance: MYCOPHENOLIC ACID
     Indication: Lung transplant
     Route: 065
  5. FAMCICLOVIR [Concomitant]
     Active Substance: FAMCICLOVIR
     Indication: Antiviral prophylaxis
     Route: 065

REACTIONS (3)
  - Ureaplasma infection [Unknown]
  - Hyperammonaemia [Recovering/Resolving]
  - Herpes simplex pneumonia [Recovering/Resolving]
